FAERS Safety Report 19072836 (Version 1)
Quarter: 2021Q1

REPORT INFORMATION
  Report Type: Spontaneous
  Country: US (occurrence: US)
  Receive Date: 20210330
  Receipt Date: 20210330
  Transmission Date: 20210420
  Serious: Yes (Hospitalization, Other)
  Sender: FDA-Public Use
  Company Number: None

PATIENT
  Age: 68 Year
  Sex: Male
  Weight: 121 kg

DRUGS (1)
  1. RENFLEXIS [Suspect]
     Active Substance: INFLIXIMAB-ABDA
     Indication: RHEUMATOID ARTHRITIS
     Dates: start: 20181101

REACTIONS (8)
  - Cyanosis [None]
  - Infusion related reaction [None]
  - Back pain [None]
  - Chills [None]
  - Syncope [None]
  - Blood pressure decreased [None]
  - Tremor [None]
  - Abdominal distension [None]

NARRATIVE: CASE EVENT DATE: 20210310
